FAERS Safety Report 8222060-2 (Version None)
Quarter: 2012Q1

REPORT INFORMATION
  Report Type: 
  Country: None (occurrence: None)
  Receive Date: 20120316
  Receipt Date: 20120308
  Transmission Date: 20120608
  Serious: Yes (Other)
  Sender: FDA-Public Use
  Company Number: AXC-2011-000536

PATIENT
  Age: 61 Year
  Sex: Male

DRUGS (5)
  1. URSODEOXYCHOLIC ACID (USODEOXYCHOLIC ACID) TABLET, 100MG [Suspect]
     Indication: HEPATITIS C
     Dosage: 600 MG, QD, ORAL
     Route: 048
     Dates: start: 20110316
  2. SHAKUYAKUKANZOUTOU (HERBAL EXTRACT NOS) [Concomitant]
  3. LASIX [Suspect]
     Indication: PRODUCT USED FOR UNKNOWN INDICATION
     Dosage: 20 MG, QD, ORAL
     Route: 048
  4. KINDEDAK (EPALRESTAT) [Concomitant]
  5. HUMALOG [Concomitant]

REACTIONS (2)
  - HEPATITIS C [None]
  - CONDITION AGGRAVATED [None]
